FAERS Safety Report 19717418 (Version 1)
Quarter: 2021Q3

REPORT INFORMATION
  Report Type: Spontaneous
  Country: ES (occurrence: ES)
  Receive Date: 20210819
  Receipt Date: 20210819
  Transmission Date: 20211014
  Serious: Yes (Hospitalization, Other)
  Sender: FDA-Public Use
  Company Number: ES-PBT-000108

PATIENT
  Age: 72 Year

DRUGS (3)
  1. EVEROLIMUS. [Suspect]
     Active Substance: EVEROLIMUS
     Indication: PROPHYLAXIS AGAINST TRANSPLANT REJECTION
     Route: 065
  2. TACROLIMUS. [Suspect]
     Active Substance: TACROLIMUS
     Indication: PROPHYLAXIS AGAINST TRANSPLANT REJECTION
     Route: 065
  3. LOPINAVIR [Interacting]
     Active Substance: LOPINAVIR
     Indication: COVID-19
     Dosage: LOPINAVIR/RITONAVIR 400MG/100 MG
     Route: 048

REACTIONS (7)
  - Micturition disorder [Recovering/Resolving]
  - Renal failure [Recovered/Resolved]
  - Dyspnoea [Recovered/Resolved]
  - Drug level increased [Recovering/Resolving]
  - COVID-19 [Recovering/Resolving]
  - Condition aggravated [Recovering/Resolving]
  - Drug interaction [Unknown]
